FAERS Safety Report 8881436 (Version 4)
Quarter: 2013Q2

REPORT INFORMATION
  Report Type: Spontaneous
  Country: JP (occurrence: JP)
  Receive Date: 20121101
  Receipt Date: 20130521
  Transmission Date: 20140414
  Serious: Yes (Hospitalization)
  Sender: FDA-Public Use
  Company Number: JP-ROCHE-1151101

PATIENT
  Age: 52 Year
  Sex: Female
  Weight: 36 kg

DRUGS (22)
  1. AVASTIN [Suspect]
     Indication: COLON CANCER METASTATIC
     Route: 041
     Dates: start: 20110209, end: 20121017
  2. ELPLAT [Suspect]
     Indication: COLON CANCER METASTATIC
     Dosage: DOSAGE IS UNCERTAIN.
     Route: 041
     Dates: start: 20110209
  3. ELPLAT [Suspect]
     Route: 041
     Dates: start: 20120410, end: 2012
  4. 5-FU [Suspect]
     Indication: COLON CANCER METASTATIC
     Dosage: DOSAGE IS UNCERTAIN. MODIFIED OXALIPLATIN PLUS 5-FLUOROURACIL/LEVOFOLINATE CALCIUM (MFOLFOX6)
     Route: 040
     Dates: start: 20110209, end: 2011
  5. 5-FU [Suspect]
     Dosage: DOSAGE IS UNCERTAIN. MODIFIED OXALIPLATIN PLUS 5-FLUOROURACIL/LEVOFOLINATE CALCIUM (MFOLFOX6)
     Route: 041
     Dates: start: 20110209, end: 2011
  6. 5-FU [Suspect]
     Dosage: DOSAGE IS UNCERTAIN. SIMPLIFIED BIWEEKLY 5-FU AND LEVOFOLINATE CALCIUM(SLV5FU2)
     Route: 040
     Dates: start: 20110719, end: 2012
  7. 5-FU [Suspect]
     Dosage: DOSAGE IS UNCERTAIN. SIMPLIFIED BIWEEKLY 5-FU AND LEVOFOLINATE CALCIUM (SLV5FU2)
     Route: 041
     Dates: start: 20110719, end: 2012
  8. 5-FU [Suspect]
     Route: 040
     Dates: start: 20120410, end: 2012
  9. 5-FU [Suspect]
     Route: 041
     Dates: start: 20120410, end: 2012
  10. LEVOFOLINATE [Suspect]
     Indication: COLON CANCER METASTATIC
     Dosage: DOSAGE IS UNCERTAIN. MFOLFOC6
     Route: 041
     Dates: start: 20110209, end: 2011
  11. LEVOFOLINATE [Suspect]
     Dosage: DOSAGE IS UNCERTAIN. SIMPLIFIED BIWEEKLY 5-FU AND LEVOFOLINATE CALCIUM (SLV5FU2)
     Route: 041
     Dates: start: 20110719, end: 2012
  12. LEVOFOLINATE [Suspect]
     Route: 041
     Dates: start: 20120410, end: 2012
  13. CAMPTO [Suspect]
     Indication: COLON CANCER METASTATIC
     Dosage: RECEIVED 5TH COURSE ON 17/OCT/2012 AT 200MG
     Route: 041
     Dates: start: 20120725, end: 20121017
  14. MUCOSTA [Concomitant]
     Indication: GASTRITIS PROPHYLAXIS
     Route: 048
     Dates: start: 20120619
  15. BIO-THREE [Concomitant]
     Indication: PROPHYLAXIS AGAINST DIARRHOEA
     Route: 048
     Dates: start: 20120619
  16. LOXONIN [Concomitant]
     Indication: CANCER PAIN
     Route: 048
     Dates: start: 20120724
  17. EMEND [Concomitant]
     Indication: PROPHYLAXIS OF NAUSEA AND VOMITING
     Route: 048
     Dates: start: 20121017, end: 20121019
  18. ALOXI [Concomitant]
     Dosage: DOSAGE IS UNCERTAIN.
     Route: 042
  19. DECADRON [Concomitant]
     Dosage: DOSAGE IS UNCERTAIN.
     Route: 065
  20. METHYCOBAL [Concomitant]
     Dosage: DOSAGE IS UNCERTAIN.
     Route: 048
  21. HACHIAZULE [Concomitant]
     Dosage: DOSAGE IS UNCERTAIN.
     Route: 049
  22. ROPION [Concomitant]
     Dosage: DOSAGE IS UNCERTAIN.
     Route: 042

REACTIONS (6)
  - Gastrointestinal perforation [Recovered/Resolved]
  - Pancreatitis [Unknown]
  - Nausea [Unknown]
  - Neuropathy peripheral [Recovering/Resolving]
  - Anaemia [Recovering/Resolving]
  - Peptic ulcer [Unknown]
